FAERS Safety Report 8101894-9 (Version None)
Quarter: 2012Q1

REPORT INFORMATION
  Report Type: 
  Country: None (occurrence: None)
  Receive Date: 20120126
  Receipt Date: 20120117
  Transmission Date: 20120608
  Serious: Yes (Death, Hospitalization)
  Sender: FDA-Public Use
  Company Number: UTC-014046

PATIENT
  Age: 58 Year
  Sex: Male
  Weight: 104.5 kg

DRUGS (5)
  1. ADCURCA (TADALAFIL) [Concomitant]
  2. REMODULIN [Suspect]
     Indication: PULMONARY ARTERIAL HYPERTENSION
     Dosage: 37.44 UG/KG (0.026 UG/KG, 1 IN 1 MIN), INTRAVENOUS
     Route: 042
     Dates: start: 20110603
  3. DIURETICS [Concomitant]
  4. ASPIRIN [Concomitant]
  5. DIGOXIN [Concomitant]

REACTIONS (5)
  - PORTAL HYPERTENSION [None]
  - FALL [None]
  - HEAD INJURY [None]
  - CARDIAC FAILURE CONGESTIVE [None]
  - RENAL FAILURE ACUTE [None]
